FAERS Safety Report 18519830 (Version 2)
Quarter: 2020Q4

REPORT INFORMATION
  Report Type: Spontaneous
  Country: US (occurrence: US)
  Receive Date: 20201118
  Receipt Date: 20201218
  Transmission Date: 20210114
  Serious: Yes (Other)
  Sender: FDA-Public Use
  Company Number: US-PURDUE-USA-2020-0165253

PATIENT
  Age: 13 Year
  Sex: Male

DRUGS (2)
  1. OXYCONTIN [Suspect]
     Active Substance: OXYCODONE HYDROCHLORIDE
     Indication: PRODUCT USED FOR UNKNOWN INDICATION
     Dosage: UNK
     Route: 048
  2. OXYCODONE HYDROCHLORIDE (SIMILAR TO NDA 22-272) [Suspect]
     Active Substance: OXYCODONE HYDROCHLORIDE
     Indication: PAIN
     Dosage: UNK UNK, DAILY
     Route: 048
     Dates: start: 2006, end: 2010

REACTIONS (7)
  - Pancreatitis [Unknown]
  - Emotional distress [Unknown]
  - Drug abuse [Unknown]
  - Mental impairment [Unknown]
  - Pain [Unknown]
  - Drug dependence [Recovering/Resolving]
  - Drug withdrawal syndrome [Unknown]
